FAERS Safety Report 18366375 (Version 1)
Quarter: 2020Q4

REPORT INFORMATION
  Report Type: Spontaneous
  Country: US (occurrence: US)
  Receive Date: 20201009
  Receipt Date: 20201009
  Transmission Date: 20210114
  Serious: Yes (Death, Other)
  Sender: FDA-Public Use
  Company Number: US-PFIZER INC-2020387675

PATIENT
  Age: 57 Year
  Sex: Male

DRUGS (1)
  1. DIPHENHYDRAMINE HCL [Suspect]
     Active Substance: DIPHENHYDRAMINE HYDROCHLORIDE
     Dosage: UNK

REACTIONS (6)
  - Completed suicide [Fatal]
  - Mood swings [Unknown]
  - Drug dependence [Unknown]
  - Poisoning [Unknown]
  - Memory impairment [Unknown]
  - Overdose [Fatal]

NARRATIVE: CASE EVENT DATE: 20021113
